FAERS Safety Report 13466230 (Version 1)
Quarter: 2017Q2

REPORT INFORMATION
  Report Type: Spontaneous
  Country: PL (occurrence: PL)
  Receive Date: 20170421
  Receipt Date: 20170421
  Transmission Date: 20170830
  Serious: Yes (Death, Hospitalization, Other)
  Sender: FDA-Public Use
  Company Number: PL-APOTEX-2017AP010530

PATIENT
  Age: 33 Year
  Sex: Male

DRUGS (1)
  1. CYCLOSPORINE. [Suspect]
     Active Substance: CYCLOSPORINE
     Indication: IMMUNOSUPPRESSANT DRUG THERAPY
     Route: 065

REACTIONS (9)
  - Multiple organ dysfunction syndrome [Fatal]
  - Lung abscess [Unknown]
  - Acute kidney injury [Unknown]
  - Embolism [Unknown]
  - Peripheral ischaemia [Unknown]
  - Aspergillus infection [Unknown]
  - Sepsis [Unknown]
  - Salmonella test positive [Unknown]
  - Fungal endocarditis [Unknown]
